FAERS Safety Report 17187773 (Version 1)
Quarter: 2019Q4

REPORT INFORMATION
  Report Type: Spontaneous
  Country: US (occurrence: US)
  Receive Date: 20191221
  Receipt Date: 20191221
  Transmission Date: 20200122
  Serious: No
  Sender: FDA-Public Use
  Company Number: US-SHIRE-US201944146

PATIENT
  Sex: Female

DRUGS (1)
  1. XIIDRA [Suspect]
     Active Substance: LIFITEGRAST
     Indication: DRY EYE
     Dosage: 1 DROP EACH EYE, 2X/DAY:BID
     Route: 047
     Dates: start: 2018

REACTIONS (5)
  - Ocular discomfort [Unknown]
  - Off label use [Unknown]
  - Eye irritation [Unknown]
  - Eye pruritus [Unknown]
  - Rash [Unknown]
